FAERS Safety Report 5908020-2 (Version None)
Quarter: 2008Q4

REPORT INFORMATION
  Report Type: 
  Country: None (occurrence: None)
  Receive Date: 20081003
  Receipt Date: 20080910
  Transmission Date: 20090506
  Serious: No
  Sender: FDA-Public Use
  Company Number: US-B.I. PHARMACEUTICALS,INC./RIDGEFIELD-2008-BP-14423BP

PATIENT
  Sex: Male
  Weight: 83 kg

DRUGS (1)
  1. MIRAPEX [Suspect]
     Indication: PARKINSON'S DISEASE
     Dates: start: 20010801, end: 20060501

REACTIONS (4)
  - ANXIETY [None]
  - DEPRESSION [None]
  - PATHOLOGICAL GAMBLING [None]
  - STRESS [None]
